FAERS Safety Report 8469295-1 (Version None)
Quarter: 2012Q2

REPORT INFORMATION
  Report Type: 
  Country: None (occurrence: None)
  Receive Date: 20120626
  Receipt Date: 20120619
  Transmission Date: 20120825
  Serious: Yes (Hospitalization, Other)
  Sender: FDA-Public Use
  Company Number: CH-ELI_LILLY_AND_COMPANY-CH201206006472

PATIENT
  Age: 73 Year
  Sex: Female
  Weight: 53 kg

DRUGS (1)
  1. FORTEO [Suspect]
     Indication: OSTEOPOROSIS
     Dosage: 20 UG, QD
     Route: 058
     Dates: start: 20110318

REACTIONS (7)
  - HOSPITALISATION [None]
  - LOSS OF CONSCIOUSNESS [None]
  - FALL [None]
  - MYOCARDIAL INFARCTION [None]
  - HIP FRACTURE [None]
  - UPPER LIMB FRACTURE [None]
  - RIB FRACTURE [None]
